FAERS Safety Report 15280588 (Version 3)
Quarter: 2018Q4

REPORT INFORMATION
  Report Type: Spontaneous
  Country: JP (occurrence: JP)
  Receive Date: 20180815
  Receipt Date: 20181112
  Transmission Date: 20190204
  Serious: Yes (Death, Hospitalization)
  Sender: FDA-Public Use
  Company Number: JP-EISAI MEDICAL RESEARCH-EC-2018-043960

PATIENT
  Sex: Male
  Weight: 70 kg

DRUGS (1)
  1. LENVIMA [Suspect]
     Active Substance: LENVATINIB
     Indication: HEPATOCELLULAR CARCINOMA
     Route: 048
     Dates: start: 201807, end: 201808

REACTIONS (4)
  - Conduction disorder [Unknown]
  - Hyperkalaemia [Unknown]
  - Creatinine renal clearance decreased [Unknown]
  - Pneumonia [Fatal]

NARRATIVE: CASE EVENT DATE: 201808
